FAERS Safety Report 7304809-6 (Version None)
Quarter: 2011Q1

REPORT INFORMATION
  Report Type: 
  Country: None (occurrence: None)
  Receive Date: 20110222
  Receipt Date: 20110218
  Transmission Date: 20110831
  Serious: Yes (Other)
  Sender: FDA-Public Use
  Company Number: US-PFIZER INC-2011036871

PATIENT
  Sex: Male

DRUGS (1)
  1. DEPO-MEDROL [Suspect]
     Dosage: 1 DF, UNK
     Route: 030

REACTIONS (5)
  - MYOPATHY [None]
  - ATROPHY [None]
  - ERECTILE DYSFUNCTION [None]
  - DEPRESSION [None]
  - ANXIETY [None]
